FAERS Safety Report 20631804 (Version 1)
Quarter: 2022Q1

REPORT INFORMATION
  Report Type: Spontaneous
  Country: US (occurrence: None)
  Receive Date: 20220323
  Receipt Date: 20220323
  Transmission Date: 20220424
  Serious: Yes (Other)
  Sender: FDA-Public Use
  Company Number: None

PATIENT
  Age: 34 Year
  Sex: Female
  Weight: 90 kg

DRUGS (5)
  1. SUBOXONE [Suspect]
     Active Substance: BUPRENORPHINE HYDROCHLORIDE\NALOXONE HYDROCHLORIDE
     Indication: Drug use disorder
     Dosage: OTHER QUANTITY : 3 STRIPS AND TABS;?FREQUENCY : 3 TIMES A DAY;?
     Route: 060
  2. SUBUTEC [Concomitant]
  3. CLONIDINE [Concomitant]
     Active Substance: CLONIDINE
  4. TRINTILIX [Concomitant]
  5. GABAPENTIN [Concomitant]
     Active Substance: GABAPENTIN

REACTIONS (5)
  - Tooth loss [None]
  - Drug hypersensitivity [None]
  - Impaired quality of life [None]
  - Emotional distress [None]
  - Emotional distress [None]

NARRATIVE: CASE EVENT DATE: 20211001
